FAERS Safety Report 24356540 (Version 1)
Quarter: 2024Q3

REPORT INFORMATION
  Report Type: Spontaneous
  Country: CO (occurrence: CO)
  Receive Date: 20240924
  Receipt Date: 20240924
  Transmission Date: 20241017
  Serious: Yes (Hospitalization)
  Sender: REGENERON
  Company Number: CO-SA-2024SA272569

PATIENT
  Age: 33 Year
  Sex: Male

DRUGS (1)
  1. PRALUENT [Suspect]
     Active Substance: ALIROCUMAB
     Indication: Hypercholesterolaemia
     Dosage: UNK
     Route: 058
     Dates: start: 202407

REACTIONS (4)
  - Gastroenteritis [Unknown]
  - Vomiting [Unknown]
  - Renal pain [Unknown]
  - Blood glucose increased [Unknown]

NARRATIVE: CASE EVENT DATE: 20240912
